FAERS Safety Report 4576056-2 (Version None)
Quarter: 2005Q1

REPORT INFORMATION
  Report Type: 
  Country: None (occurrence: None)
  Receive Date: 20050204
  Receipt Date: 20050117
  Transmission Date: 20050727
  Serious: Yes (Hospitalization)
  Sender: FDA-Public Use
  Company Number: ES-2005-000806

PATIENT
  Age: 69 Year
  Sex: Female

DRUGS (1)
  1. BENEFLUR INJ.(FULDARABINE PHOSPHATE) AMPULE [Suspect]
     Indication: CHRONIC LYMPHOCYTIC LEUKAEMIA

REACTIONS (1)
  - COLITIS ISCHAEMIC [None]
